FAERS Safety Report 4344648-1 (Version None)
Quarter: 2004Q1

REPORT INFORMATION
  Report Type: 
  Country: None (occurrence: None)
  Receive Date: 20040319
  Receipt Date: 20040129
  Transmission Date: 20041129
  Serious: No
  Sender: FDA-Public Use
  Company Number: US-JNJFOC-20040200198

PATIENT
  Age: 36 Year
  Sex: Female
  Weight: 67.1324 kg

DRUGS (2)
  1. ORTHO EVRA [Suspect]
     Indication: CONTRACEPTION
     Dosage: 1 DOSES, 3 IN 4 WEEKS TRANSDERMAL
     Route: 062
  2. ALLEGRA [Concomitant]

REACTIONS (1)
  - OLIGOMENORRHOEA [None]
